FAERS Safety Report 9492173 (Version 1)
Quarter: 2013Q3

REPORT INFORMATION
  Report Type: Report from Study
  Country: US (occurrence: US)
  Receive Date: 20130830
  Receipt Date: 20130830
  Transmission Date: 20140515
  Serious: Yes (Death)
  Sender: FDA-Public Use
  Company Number: US-GLAXOSMITHKLINE-A1039567A

PATIENT
  Age: 66 Year
  Sex: Male
  Weight: 71.7 kg

DRUGS (19)
  1. OFATUMUMAB [Suspect]
     Indication: CHRONIC LYMPHOCYTIC LEUKAEMIA
     Dosage: 100MG CYCLIC
     Route: 042
     Dates: start: 20130409
  2. METHYLPREDNISOLONE [Suspect]
     Indication: CHRONIC LYMPHOCYTIC LEUKAEMIA
     Dosage: 1800MG CYCLIC
     Route: 042
     Dates: start: 20130409
  3. ACYCLOVIR [Concomitant]
  4. ALLOPURINOL [Concomitant]
  5. AMLODIPINE [Concomitant]
  6. ATORVASTATIN [Concomitant]
  7. BACTRIM DS [Concomitant]
  8. FLUCONAZOLE [Concomitant]
  9. HCTZ [Concomitant]
  10. LANTUS [Concomitant]
  11. LEVOFLOXACIN [Concomitant]
  12. LISINOPRIL [Concomitant]
  13. LORAZEPAM [Concomitant]
  14. MEPRON [Concomitant]
  15. PREDNISONE [Concomitant]
  16. LIDOCAINE + MAALOX [Concomitant]
  17. SEVELAMER [Concomitant]
  18. TRIAMTERENE [Concomitant]
  19. ZOFRAN [Concomitant]

REACTIONS (1)
  - Intra-abdominal haemorrhage [Fatal]
